FAERS Safety Report 4938644-0 (Version None)
Quarter: 2006Q1

REPORT INFORMATION
  Report Type: 
  Country: None (occurrence: None)
  Receive Date: 20060113
  Receipt Date: 20050418
  Transmission Date: 20060701
  Serious: Yes (Other)
  Sender: FDA-Public Use
  Company Number: HQWYE227403NOV04

PATIENT
  Age: 64 Year
  Sex: Female
  Weight: 84.44 kg

DRUGS (6)
  1. PREMPRO [Suspect]
     Indication: PROPHYLAXIS
  2. PREMARIN [Suspect]
  3. PROVERA [Suspect]
  4. LISINOPRIL [Concomitant]
  5. HYDROCHLOROTHIAZIDE [Concomitant]
  6. ZOCOR [Concomitant]

REACTIONS (1)
  - BREAST CANCER [None]
